FAERS Safety Report 11234655 (Version 2)
Quarter: 2015Q3

REPORT INFORMATION
  Report Type: Spontaneous
  Country: US (occurrence: US)
  Receive Date: 20150702
  Receipt Date: 20150723
  Transmission Date: 20151125
  Serious: Yes (Hospitalization, Other)
  Sender: FDA-Public Use
  Company Number: US-BAXTER-2015BAX035668

PATIENT
  Sex: Male

DRUGS (2)
  1. EXTRANEAL [Suspect]
     Active Substance: CALCIUM CHLORIDE\ICODEXTRIN\MAGNESIUM CHLORIDE\SODIUM CHLORIDE\SODIUM LACTATE
     Dosage: EXTRANEAL RESTARTED
     Route: 033
     Dates: start: 20150712
  2. EXTRANEAL [Suspect]
     Active Substance: CALCIUM CHLORIDE\ICODEXTRIN\MAGNESIUM CHLORIDE\SODIUM CHLORIDE\SODIUM LACTATE
     Indication: CHRONIC KIDNEY DISEASE
     Dosage: 2 LITERS BAGS
     Route: 033
     Dates: start: 20150529, end: 20150619

REACTIONS (6)
  - Clostridium difficile infection [Recovered/Resolved]
  - Disease recurrence [Recovering/Resolving]
  - Diverticulitis [Recovered/Resolved]
  - Umbilical hernia [Recovering/Resolving]
  - Urinary tract infection [Recovered/Resolved]
  - Incorrect dose administered [Recovered/Resolved]

NARRATIVE: CASE EVENT DATE: 201506
